FAERS Safety Report 16633013 (Version 1)
Quarter: 2019Q3

REPORT INFORMATION
  Report Type: Spontaneous
  Country: US (occurrence: US)
  Receive Date: 20190725
  Receipt Date: 20190725
  Transmission Date: 20191004
  Serious: Yes (Other)
  Sender: FDA-Public Use
  Company Number: US-BAYER-2019-139115

PATIENT
  Age: 24 Year
  Sex: Female

DRUGS (2)
  1. MIRENA [Suspect]
     Active Substance: LEVONORGESTREL
     Indication: CONTRACEPTION
  2. MIRENA [Suspect]
     Active Substance: LEVONORGESTREL
     Indication: CONTRACEPTION
     Dosage: 20 MCG/24HR, CONT
     Route: 015
     Dates: start: 201807, end: 20190719

REACTIONS (5)
  - Pelvic pain [None]
  - Device dislocation [Recovered/Resolved]
  - Vomiting [None]
  - Diarrhoea [None]
  - Abdominal pain upper [None]

NARRATIVE: CASE EVENT DATE: 20190719
